FAERS Safety Report 4611640-9 (Version None)
Quarter: 2005Q2

REPORT INFORMATION
  Report Type: 
  Country: None (occurrence: None)
  Receive Date: 20050311
  Receipt Date: 20050112
  Transmission Date: 20051028
  Serious: No
  Sender: FDA-Public Use
  Company Number: 2005-BP-00554BP

PATIENT
  Sex: Female

DRUGS (10)
  1. SPIRIVA [Suspect]
     Indication: BRONCHIECTASIS
     Dosage: 18 MCG (18 MCG), IH
     Route: 055
     Dates: start: 20050111
  2. SPIRIVA [Suspect]
     Indication: CHRONIC OBSTRUCTIVE PULMONARY DISEASE
     Dosage: 18 MCG (18 MCG), IH
     Route: 055
     Dates: start: 20050111
  3. COZAAR [Concomitant]
  4. ALDACTONE [Concomitant]
  5. HYDROCHLOROTHIAZIDE [Concomitant]
  6. PREMARIN [Concomitant]
  7. K-DUR 10 [Concomitant]
  8. ADVAIR DISKUS 100/50 [Concomitant]
  9. PREVACID [Concomitant]
  10. ZOLOFT [Concomitant]

REACTIONS (2)
  - DYSPNOEA EXACERBATED [None]
  - FEELING HOT [None]
